FAERS Safety Report 8830619 (Version 4)
Quarter: 2014Q3

REPORT INFORMATION
  Report Type: Spontaneous
  Country: US (occurrence: US)
  Receive Date: 20121008
  Receipt Date: 20140823
  Transmission Date: 20150326
  Serious: Yes (Hospitalization, Disabling, Other)
  Sender: FDA-Public Use
  Company Number: US-009507513-1210USA002347

PATIENT
  Sex: Female
  Weight: 65.76 kg

DRUGS (1)
  1. NUVARING [Suspect]
     Active Substance: ETHINYL ESTRADIOL\ETONOGESTREL
     Indication: CONTRACEPTION
     Dosage: UNK
     Route: 067
     Dates: start: 201001, end: 201012

REACTIONS (15)
  - Pulmonary embolism [Unknown]
  - Hypercoagulation [Unknown]
  - Pulmonary embolism [Unknown]
  - Gallbladder disorder [Unknown]
  - Maternal exposure before pregnancy [Unknown]
  - Pulmonary embolism [Unknown]
  - Pulmonary embolism [Unknown]
  - Urinary tract infection [Unknown]
  - Grief reaction [Unknown]
  - Pleurisy [Unknown]
  - Back pain [Unknown]
  - Abortion spontaneous [Unknown]
  - Pulmonary infarction [Unknown]
  - Deep vein thrombosis [Unknown]
  - Peripheral swelling [Unknown]

NARRATIVE: CASE EVENT DATE: 201010
